FAERS Safety Report 12712308 (Version 1)
Quarter: 2016Q3

REPORT INFORMATION
  Report Type: Spontaneous
  Country: US (occurrence: US)
  Receive Date: 20160902
  Receipt Date: 20160902
  Transmission Date: 20161109
  Serious: No
  Sender: FDA-Public Use
  Company Number: US-BAYER-2016-171326

PATIENT
  Age: 32 Year
  Sex: Female
  Weight: 102.4 kg

DRUGS (1)
  1. CLARITIN [Suspect]
     Active Substance: LORATADINE
     Indication: HYPERSENSITIVITY
     Dosage: 1 DF, UNK
     Route: 048
     Dates: start: 20160809, end: 201608

REACTIONS (3)
  - Off label use [None]
  - Maternal exposure during pregnancy [Unknown]
  - Drug ineffective [None]

NARRATIVE: CASE EVENT DATE: 20160809
